FAERS Safety Report 7078742-1 (Version None)
Quarter: 2010Q4

REPORT INFORMATION
  Report Type: 
  Country: None (occurrence: None)
  Receive Date: 20101102
  Receipt Date: 20101025
  Transmission Date: 20110411
  Serious: Yes (Life-Threatening, Other)
  Sender: FDA-Public Use
  Company Number: FR-PFIZER INC-2009307556

PATIENT
  Age: 53 Year
  Sex: Male
  Weight: 90 kg

DRUGS (4)
  1. CHAMPIX [Suspect]
     Indication: SMOKING CESSATION THERAPY
     Dosage: 1 MG, 2X/DAY
     Route: 048
     Dates: start: 20090717, end: 20091018
  2. CHONDROSULF [Concomitant]
     Indication: HERNIA
     Dosage: UNK
     Route: 048
     Dates: start: 20091002, end: 20091015
  3. CHONDROSULF [Concomitant]
     Indication: OSTEOARTHRITIS
  4. MYOLASTAN [Concomitant]
     Indication: BACK PAIN
     Dosage: UNK
     Route: 048
     Dates: start: 20091002, end: 20091015

REACTIONS (16)
  - ABNORMAL BEHAVIOUR [None]
  - AGGRESSION [None]
  - AGITATION [None]
  - ALCOHOL ABUSE [None]
  - ALCOHOLISM [None]
  - DECREASED INTEREST [None]
  - DEPRESSION [None]
  - HYPERACUSIS [None]
  - IMPAIRED WORK ABILITY [None]
  - MANIA [None]
  - MEMORY IMPAIRMENT [None]
  - NICOTINE DEPENDENCE [None]
  - OBSESSIVE-COMPULSIVE DISORDER [None]
  - SUICIDAL IDEATION [None]
  - WEIGHT INCREASED [None]
  - WITHDRAWAL SYNDROME [None]
